FAERS Safety Report 6879814-4 (Version None)
Quarter: 2010Q3

REPORT INFORMATION
  Report Type: 
  Country: None (occurrence: None)
  Receive Date: 20100728
  Receipt Date: 20100714
  Transmission Date: 20110219
  Serious: Yes (Other)
  Sender: FDA-Public Use
  Company Number: JP-MYLANLABS-2010S1012569

PATIENT
  Age: 73 Year
  Sex: Male

DRUGS (18)
  1. RISPERIDONE [Suspect]
     Indication: SCHIZOPHRENIA
     Route: 048
     Dates: start: 20100614
  2. RISPERIDONE [Suspect]
     Route: 048
     Dates: start: 20100617
  3. RISPERIDONE [Suspect]
     Route: 048
     Dates: start: 20100622
  4. RISPERIDONE [Suspect]
     Route: 048
     Dates: start: 20100628
  5. RISPERIDONE [Suspect]
     Route: 048
     Dates: start: 20100701
  6. RISPERIDONE [Suspect]
     Route: 048
     Dates: start: 20100702
  7. RISPERIDONE [Suspect]
     Route: 048
     Dates: start: 20100706
  8. RISPERIDONE [Suspect]
     Route: 048
     Dates: start: 20100706
  9. RISPERIDONE [Suspect]
     Route: 048
     Dates: start: 20100709
  10. LEVEMIR [Concomitant]
     Indication: PRODUCT USED FOR UNKNOWN INDICATION
     Route: 042
  11. AMLODIPINE [Concomitant]
     Indication: PRODUCT USED FOR UNKNOWN INDICATION
     Route: 048
  12. RENIVEZE [Concomitant]
     Indication: PRODUCT USED FOR UNKNOWN INDICATION
     Route: 048
  13. LANSOPRAZOLE [Concomitant]
     Indication: PRODUCT USED FOR UNKNOWN INDICATION
     Route: 048
  14. FLUNITRAZEPAM [Concomitant]
     Indication: PRODUCT USED FOR UNKNOWN INDICATION
     Route: 048
  15. VALERIN /00228502/ [Concomitant]
     Indication: PRODUCT USED FOR UNKNOWN INDICATION
     Route: 048
  16. GOODMIN [Concomitant]
     Indication: PRODUCT USED FOR UNKNOWN INDICATION
     Route: 048
  17. PALNAC [Concomitant]
     Indication: PRODUCT USED FOR UNKNOWN INDICATION
     Route: 048
  18. MAGMITT [Concomitant]
     Indication: PRODUCT USED FOR UNKNOWN INDICATION
     Route: 048

REACTIONS (1)
  - HYPOGLYCAEMIA [None]
